FAERS Safety Report 4634509-2 (Version None)
Quarter: 2005Q2

REPORT INFORMATION
  Report Type: 
  Country: None (occurrence: None)
  Receive Date: 20050412
  Receipt Date: 20050330
  Transmission Date: 20051028
  Serious: Yes (Other)
  Sender: FDA-Public Use
  Company Number: HQWYE597731MAR03

PATIENT
  Age: 76 Year
  Sex: Male

DRUGS (4)
  1. CORDARONE [Suspect]
     Dosage: 200 MG 1 X PER 1 DAY
  2. RAMIPRIL [Suspect]
  3. SIMVASTATIN [Suspect]
  4. WARFARIN SODIUM [Suspect]

REACTIONS (3)
  - BLISTER [None]
  - PAIN OF SKIN [None]
  - RASH [None]
